FAERS Safety Report 13042622 (Version 1)
Quarter: 2016Q4

REPORT INFORMATION
  Report Type: Spontaneous
  Country: GB (occurrence: GB)
  Receive Date: 20161219
  Receipt Date: 20161219
  Transmission Date: 20170207
  Serious: Yes (Other)
  Sender: FDA-Public Use
  Company Number: GB-MYLANLABS-2016M1055730

PATIENT

DRUGS (1)
  1. MIRTAZAPINE. [Suspect]
     Active Substance: MIRTAZAPINE
     Indication: ANXIETY
     Dosage: 15 MG, UNK
     Route: 048
     Dates: start: 20161111, end: 20161113

REACTIONS (4)
  - Diarrhoea [Unknown]
  - Chills [Unknown]
  - Fall [Unknown]
  - Pyrexia [Unknown]
